FAERS Safety Report 7883395-6 (Version None)
Quarter: 2011Q4

REPORT INFORMATION
  Report Type: 
  Country: None (occurrence: None)
  Receive Date: 20111102
  Receipt Date: 20111020
  Transmission Date: 20120403
  Serious: Yes (Hospitalization, Other)
  Sender: FDA-Public Use
  Company Number: US-BAYER-201039233NA

PATIENT
  Age: 33 Year
  Sex: Female
  Weight: 99 kg

DRUGS (17)
  1. GEODON [Concomitant]
     Dosage: 80 MG, BID
     Route: 048
     Dates: end: 20070923
  2. FLUOXETINE HCL [Concomitant]
     Dosage: 40 MG, DAILY
     Route: 048
     Dates: end: 20070923
  3. LISINOPRIL [Concomitant]
     Dosage: 2.5 MG, DAILY
     Route: 048
     Dates: end: 20070923
  4. RANITIDINE [Concomitant]
     Dosage: 150 MG, BID
     Route: 048
     Dates: end: 20070923
  5. ALBUTEROL [Concomitant]
  6. VITAMIN D [Concomitant]
     Dosage: 50 U, DAILY
     Route: 048
     Dates: end: 20070923
  7. ASCORBIC ACID [Concomitant]
     Dosage: UNK
     Dates: start: 20070821
  8. ROZEREM [Concomitant]
  9. GABAPENTIN [Concomitant]
     Dosage: 300 MG, BID
     Route: 048
     Dates: end: 20070923
  10. ADVAIR DISKUS 100/50 [Concomitant]
     Dosage: ORAL1 PUFF(S), BID
     Route: 048
     Dates: end: 20070923
  11. PLAVIX [Concomitant]
     Dosage: 75 MG, DAILY
     Dates: end: 20070923
  12. DARVOCET [Concomitant]
  13. YASMIN [Suspect]
     Indication: CONTRACEPTION
     Route: 048
  14. AMOXICILLIN [Concomitant]
  15. LOESTRIN 1.5/30 [Concomitant]
  16. TRAZODONE HYDROCHLORIDE [Concomitant]
     Dosage: 50 MG, Q HS
     Route: 048
     Dates: end: 20070923
  17. NAPROXEN SODIUM AND PSEUDOEPHEDRINE HYDROCHLORIDE [Concomitant]

REACTIONS (5)
  - DEPRESSION [None]
  - MYOCARDIAL INFARCTION [None]
  - DEEP VEIN THROMBOSIS [None]
  - ANXIETY [None]
  - CEREBROVASCULAR ACCIDENT [None]
